FAERS Safety Report 18863403 (Version 1)
Quarter: 2021Q1

REPORT INFORMATION
  Report Type: Spontaneous
  Country: DE (occurrence: DE)
  Receive Date: 20210209
  Receipt Date: 20210209
  Transmission Date: 20210420
  Serious: Yes (Hospitalization, Other)
  Sender: FDA-Public Use
  Company Number: DE-ALKEM LABORATORIES LIMITED-DE-ALKEM-2021-00134

PATIENT
  Age: 65 Year
  Sex: Male

DRUGS (1)
  1. AMLODIPINE BESYLATE. [Suspect]
     Active Substance: AMLODIPINE BESYLATE
     Indication: HYPERTENSION
     Dosage: UNK
     Route: 065

REACTIONS (9)
  - Overdose [Unknown]
  - Anterograde amnesia [Unknown]
  - Aortic thrombosis [Unknown]
  - Drug level increased [Unknown]
  - Toxicity to various agents [Unknown]
  - Embolic stroke [Unknown]
  - Atrial fibrillation [Unknown]
  - Shock [Unknown]
  - Confusional state [Unknown]
